FAERS Safety Report 9380969 (Version 2)
Quarter: 2013Q3

REPORT INFORMATION
  Report Type: Spontaneous
  Country: IT (occurrence: IT)
  Receive Date: 20130703
  Receipt Date: 20130806
  Transmission Date: 20140515
  Serious: Yes (Other)
  Sender: FDA-Public Use
  Company Number: IT-ROCHE-1243429

PATIENT
  Age: 17 Year
  Sex: Female

DRUGS (3)
  1. DIAZEPAM [Suspect]
     Indication: EPILEPSY
     Route: 040
     Dates: start: 20130531, end: 20130603
  2. FENOBARBITAL [Suspect]
     Indication: EPILEPSY
     Route: 040
  3. ROCEFIN [Concomitant]

REACTIONS (2)
  - Epilepsy [Not Recovered/Not Resolved]
  - Drug ineffective [Not Recovered/Not Resolved]
